FAERS Safety Report 8306790-X (Version None)
Quarter: 2012Q1

REPORT INFORMATION
  Report Type: 
  Country: None (occurrence: None)
  Receive Date: 20120327
  Receipt Date: 20041105
  Transmission Date: 20120608
  Serious: Yes (Other)
  Sender: FDA-Public Use
  Company Number: PHEH2004US12000

PATIENT
  Age: 44 Year
  Sex: Female

DRUGS (2)
  1. GLEEVEC [Suspect]
     Dosage: ORAL ; NO TREATMENT ; 400 MG, QD, ORAL
     Route: 048
  2. GLEEVEC [Suspect]
     Dosage: ORAL ; NO TREATMENT ; 400 MG, QD, ORAL
     Route: 048
     Dates: start: 20030101

REACTIONS (2)
  - BONE MARROW FAILURE [None]
  - GENE MUTATION IDENTIFICATION TEST POSITIVE [None]
